FAERS Safety Report 17262180 (Version 1)
Quarter: 2020Q1

REPORT INFORMATION
  Report Type: Spontaneous
  Country: AT (occurrence: AT)
  Receive Date: 20200113
  Receipt Date: 20200113
  Transmission Date: 20200409
  Serious: Yes (Other)
  Sender: FDA-Public Use
  Company Number: AT-BAYER-2020-005531

PATIENT
  Age: 50 Year
  Sex: Female

DRUGS (3)
  1. NEUPRO [Concomitant]
     Active Substance: ROTIGOTINE
  2. SINEMET [Concomitant]
     Active Substance: CARBIDOPA\LEVODOPA
     Route: 048
  3. ULTRAVIST [Suspect]
     Active Substance: IOPROMIDE
     Route: 042
     Dates: start: 20190222, end: 20190222

REACTIONS (8)
  - Dyskinesia [Recovered/Resolved]
  - Oral discomfort [Recovered/Resolved]
  - Dyspnoea [Recovered/Resolved]
  - Skin burning sensation [Recovered/Resolved]
  - Drug intolerance [Recovered/Resolved]
  - Restlessness [Recovered/Resolved]
  - Panic reaction [Recovered/Resolved]
  - Asthenia [Recovered/Resolved]

NARRATIVE: CASE EVENT DATE: 20190222
